FAERS Safety Report 15819950 (Version 1)
Quarter: 2019Q1

REPORT INFORMATION
  Report Type: Spontaneous
  Country: RO (occurrence: RO)
  Receive Date: 20190114
  Receipt Date: 20190114
  Transmission Date: 20190417
  Serious: Yes (Other)
  Sender: FDA-Public Use
  Company Number: RO-ROCHE-2244482

PATIENT
  Age: 56 Year
  Sex: Male

DRUGS (3)
  1. QUETIAPINE FUMARATE. [Suspect]
     Active Substance: QUETIAPINE FUMARATE
     Indication: HALLUCINATION, VISUAL
     Dosage: TAPERING DOSE
     Route: 065
  2. CLOZAPINE. [Suspect]
     Active Substance: CLOZAPINE
     Indication: COGNITIVE DISORDER
     Dosage: REINTRODUCED CLOZAPINE
     Route: 065
  3. CLONAZEPAM. [Suspect]
     Active Substance: CLONAZEPAM
     Indication: COGNITIVE DISORDER
     Route: 065

REACTIONS (9)
  - Aggression [Unknown]
  - Tachycardia [Unknown]
  - Acute psychosis [Unknown]
  - Stupor [Unknown]
  - Blood creatine phosphokinase increased [Unknown]
  - Neuroleptic malignant syndrome [Unknown]
  - Agitation [Unknown]
  - Drug ineffective [Unknown]
  - Hypertension [Unknown]
